FAERS Safety Report 19031770 (Version 6)
Quarter: 2021Q2

REPORT INFORMATION
  Report Type: Report from Study
  Country: AU (occurrence: AU)
  Receive Date: 20210319
  Receipt Date: 20210513
  Transmission Date: 20210717
  Serious: Yes (Hospitalization)
  Sender: FDA-Public Use
  Company Number: AU-ROCHE-2787429

PATIENT
  Age: 13 Year
  Sex: Male
  Weight: 43.32 kg

DRUGS (2)
  1. BEVACIZUMAB. [Suspect]
     Active Substance: BEVACIZUMAB
     Indication: GLIOMA
     Dosage: LAST DOSE PRIOR TO SAE: 05/MAR/2021?DATE OF MOST RECENT DOSE OF BEVACIZUMAB PRIOR TO SAE: 01/APR/202
     Route: 042
     Dates: start: 20210226
  2. VINBLASTINE [Suspect]
     Active Substance: VINBLASTINE
     Indication: GLIOMA
     Dosage: LAST DOSE PRIOR TO SAE: 05/MAR/2021?DATE OF MOST RECENT DOSE OF VINBLASTINE PRIOR TO SAE: 01/APR/202
     Route: 042
     Dates: start: 20210226

REACTIONS (2)
  - Febrile neutropenia [Recovered/Resolved]
  - Pyrexia [Recovered/Resolved]

NARRATIVE: CASE EVENT DATE: 20210308
